FAERS Safety Report 8818479 (Version 3)
Quarter: 2013Q1

REPORT INFORMATION
  Report Type: Spontaneous
  Country: US (occurrence: US)
  Receive Date: 20121001
  Receipt Date: 20130221
  Transmission Date: 20140127
  Serious: Yes (Hospitalization)
  Sender: FDA-Public Use
  Company Number: US-ELI_LILLY_AND_COMPANY-US201205004587

PATIENT
  Sex: Female
  Weight: 53 kg

DRUGS (3)
  1. FORTEO [Suspect]
     Indication: OSTEOPOROSIS
     Dosage: 20 UG, QD
     Route: 058
     Dates: start: 201112
  2. FORTEO [Suspect]
     Dosage: 20 UG, QD
     Route: 058
     Dates: end: 20120928
  3. FORTEO [Suspect]
     Dosage: 20 UG, QD
     Route: 058

REACTIONS (4)
  - Osteoarthritis [Recovered/Resolved]
  - Arthritis [Unknown]
  - Arthralgia [Unknown]
  - Alopecia [Not Recovered/Not Resolved]
